FAERS Safety Report 5083062-0 (Version None)
Quarter: 2006Q3

REPORT INFORMATION
  Report Type: 
  Country: None (occurrence: None)
  Receive Date: 20060814
  Receipt Date: 20060731
  Transmission Date: 20061208
  Serious: Yes (Hospitalization)
  Sender: FDA-Public Use
  Company Number: 2006-BP-08774RO

PATIENT
  Age: 40 Year
  Sex: Male

DRUGS (3)
  1. MIRTAZAPINE [Suspect]
     Indication: DEPRESSION
     Dosage: SEE IMAGE
  2. RISPERIDONE [Suspect]
     Indication: SCHIZOPHRENIA
     Dosage: SEE IMAGE
  3. BIPERIDEN (BIPERIDEN) [Suspect]
     Indication: SCHIZOPHRENIA
     Dosage: 2 MG DAILY

REACTIONS (5)
  - DRUG INEFFECTIVE [None]
  - HYPOKINESIA [None]
  - MUSCLE RIGIDITY [None]
  - PULMONARY EMBOLISM [None]
  - RHABDOMYOLYSIS [None]
